FAERS Safety Report 26143304 (Version 1)
Quarter: 2025Q4

REPORT INFORMATION
  Report Type: Report from Study
  Country: EU (occurrence: EU)
  Receive Date: 20251211
  Receipt Date: 20251211
  Transmission Date: 20260117
  Serious: Yes (Congenital Anomaly, Other)
  Sender: AUROBINDO
  Company Number: EU-AUROBINDO-AUR-APL-2019-067568

PATIENT

DRUGS (2)
  1. LACOSAMIDE [Suspect]
     Active Substance: LACOSAMIDE
     Indication: Drug therapy
     Dosage: UNK,(200-400 MG/D)THE MOTHER RECEIVED LACOSAMIDE DAILY FOR EPILEPSY DURING HER PREGNANCY
  2. VALPROATE [Suspect]
     Active Substance: VALPROIC ACID
     Indication: Drug therapy
     Dosage: UNK,THE MOTHER RECEIVED VALPROATE FOR EPILEPSY DURING HER PREGNANCY

REACTIONS (2)
  - Aberrant aortic arch [Unknown]
  - Foetal exposure during pregnancy [Unknown]
